FAERS Safety Report 26097570 (Version 1)
Quarter: 2025Q4

REPORT INFORMATION
  Report Type: Spontaneous
  Country: US (occurrence: US)
  Receive Date: 20251127
  Receipt Date: 20251127
  Transmission Date: 20260118
  Serious: No
  Sender: MERCK SHARP & DOHME LLC
  Company Number: US-009507513-2351557

PATIENT
  Age: 66 Year
  Sex: Male

DRUGS (5)
  1. DIFICID [Suspect]
     Active Substance: FIDAXOMICIN
     Indication: Clostridium difficile infection
     Dosage: 200 MG TWICE A DAY/10 DAYS
     Route: 048
     Dates: start: 20251113
  2. AUGMENTIN [Concomitant]
     Active Substance: AMOXICILLIN\CLAVULANATE POTASSIUM
  3. OMEPRAZOLE [Concomitant]
     Active Substance: OMEPRAZOLE
  4. IBUPROFEN [Concomitant]
     Active Substance: IBUPROFEN
  5. probiotic supplement [Concomitant]

REACTIONS (2)
  - Dizziness [Recovering/Resolving]
  - Headache [Recovered/Resolved]

NARRATIVE: CASE EVENT DATE: 20251115
